FAERS Safety Report 10414875 (Version 1)
Quarter: 2014Q3

REPORT INFORMATION
  Report Type: Spontaneous
  Country: US (occurrence: None)
  Receive Date: 20140827
  Receipt Date: 20140827
  Transmission Date: 20150326
  Serious: Yes (Hospitalization)
  Sender: FDA-Public Use
  Company Number: None

PATIENT
  Age: 43 Year
  Sex: Female

DRUGS (1)
  1. ACTHAR [Suspect]
     Active Substance: CORTICOTROPIN
     Indication: NEPHROTIC SYNDROME
     Dosage: 80U, TWICE WEEKLY, SUBCUTANEOUSLY
     Route: 058
     Dates: start: 20140818

REACTIONS (6)
  - Abdominal distension [None]
  - Alopecia [None]
  - Pain [None]
  - Vomiting [None]
  - Swelling face [None]
  - Diarrhoea [None]

NARRATIVE: CASE EVENT DATE: 20140819
